FAERS Safety Report 19946509 (Version 1)
Quarter: 2021Q4

REPORT INFORMATION
  Report Type: Spontaneous
  Country: DE (occurrence: DE)
  Receive Date: 20211012
  Receipt Date: 20211012
  Transmission Date: 20220303
  Serious: Yes (Other)
  Sender: FDA-Public Use
  Company Number: ALC2021DE005584

PATIENT

DRUGS (1)
  1. SIMBRINZA [Suspect]
     Active Substance: BRIMONIDINE TARTRATE\BRINZOLAMIDE
     Indication: Glaucoma
     Dosage: 1 DROP EACH EYE (2 X DAILY)
     Route: 047

REACTIONS (2)
  - Blindness unilateral [Unknown]
  - Wrong technique in product usage process [Unknown]
